FAERS Safety Report 22607105 (Version 1)
Quarter: 2023Q2

REPORT INFORMATION
  Report Type: Spontaneous
  Country: CN (occurrence: CN)
  Receive Date: 20230615
  Receipt Date: 20230615
  Transmission Date: 20230722
  Serious: Yes (Hospitalization)
  Sender: FDA-Public Use
  Company Number: CN-009507513-2306CHN006457

PATIENT
  Age: 88 Year
  Sex: Male
  Weight: 55 kg

DRUGS (1)
  1. INVANZ [Suspect]
     Active Substance: ERTAPENEM SODIUM
     Indication: Pneumonia
     Dosage: 1 GRAM (G), ONCE DAILY (QD)
     Route: 041
     Dates: start: 20230426, end: 20230504

REACTIONS (2)
  - Mental disorder [Recovered/Resolved]
  - Disorganised speech [Unknown]

NARRATIVE: CASE EVENT DATE: 20230502
